FAERS Safety Report 16325123 (Version 1)
Quarter: 2019Q2

REPORT INFORMATION
  Report Type: Spontaneous
  Country: US (occurrence: US)
  Receive Date: 20190516
  Receipt Date: 20190516
  Transmission Date: 20190711
  Serious: Yes (Other)
  Sender: FDA-Public Use
  Company Number: None

PATIENT
  Age: 57 Year
  Sex: Male
  Weight: 112.5 kg

DRUGS (9)
  1. BISOPROLOL [Concomitant]
     Active Substance: BISOPROLOL
  2. BECLOMETHASONE [Concomitant]
     Active Substance: BECLOMETHASONE
  3. VITAMIN B [Concomitant]
     Active Substance: VITAMIN B
  4. PRAVACHOL [Concomitant]
     Active Substance: PRAVASTATIN SODIUM
  5. D3 2000 [Concomitant]
  6. DULAGLUTIDE. [Concomitant]
     Active Substance: DULAGLUTIDE
  7. PROAIR HFA [Suspect]
     Active Substance: ALBUTEROL SULFATE
     Indication: ASTHMA
     Dosage: ?          QUANTITY:1 INHALATION(S);?
     Route: 055
  8. ALBUTEROL. [Concomitant]
     Active Substance: ALBUTEROL
  9. GLARGINE INSULIN [Concomitant]
     Active Substance: INSULIN GLARGINE

REACTIONS (2)
  - Incorrect dose administered [None]
  - Device malfunction [None]

NARRATIVE: CASE EVENT DATE: 20190511
